FAERS Safety Report 6648915-8 (Version None)
Quarter: 2010Q1

REPORT INFORMATION
  Report Type: 
  Country: None (occurrence: None)
  Receive Date: 20100319
  Receipt Date: 20100309
  Transmission Date: 20100710
  Serious: Yes (Death)
  Sender: FDA-Public Use
  Company Number: 2010EN000096

PATIENT
  Age: 3 Year
  Sex: Female
  Weight: 3.8 kg

DRUGS (2)
  1. ADAGEN [Suspect]
     Indication: COMBINED IMMUNODEFICIENCY
     Dosage: 15 IU/KG;BIW;IM, 60 IU/KG;BIW;IM, 26 IU/KG;BIW;IM, 60 IU/KG;BIW;IM
     Route: 030
     Dates: end: 20100115
  2. ADAGEN [Suspect]
     Indication: COMBINED IMMUNODEFICIENCY
     Dosage: 15 IU/KG;BIW;IM, 60 IU/KG;BIW;IM, 26 IU/KG;BIW;IM, 60 IU/KG;BIW;IM
     Route: 030
     Dates: start: 20061229

REACTIONS (1)
  - DEATH [None]
